FAERS Safety Report 16367137 (Version 1)
Quarter: 2019Q2

REPORT INFORMATION
  Report Type: Spontaneous
  Country: US (occurrence: US)
  Receive Date: 20190529
  Receipt Date: 20190529
  Transmission Date: 20190711
  Serious: No
  Sender: FDA-Public Use
  Company Number: US-GLAXOSMITHKLINE-US2019GSK084568

PATIENT
  Sex: Female

DRUGS (1)
  1. BENLYSTA [Suspect]
     Active Substance: BELIMUMAB
     Indication: PRODUCT USED FOR UNKNOWN INDICATION
     Dosage: UNK UNK, U
     Route: 058
     Dates: start: 2018

REACTIONS (4)
  - Swollen tongue [Recovered/Resolved]
  - Tongue discomfort [Recovered/Resolved]
  - Drug hypersensitivity [Unknown]
  - Paraesthesia oral [Recovered/Resolved]
